FAERS Safety Report 24446636 (Version 1)
Quarter: 2024Q4

REPORT INFORMATION
  Report Type: Spontaneous
  Country: GB (occurrence: GB)
  Receive Date: 20241016
  Receipt Date: 20241016
  Transmission Date: 20250115
  Serious: Yes (Other)
  Sender: MYLAN
  Company Number: GB-MYLANLABS-2024M1092998

PATIENT
  Sex: Female

DRUGS (1)
  1. CLOZARIL [Suspect]
     Active Substance: CLOZAPINE
     Indication: Schizophrenia
     Dosage: 75 MILLIGRAM, QD (DAILY)
     Route: 048
     Dates: start: 20010701, end: 202407

REACTIONS (3)
  - Cardiac failure [Unknown]
  - Respiratory failure [Unknown]
  - Malaise [Unknown]
